FAERS Safety Report 15504313 (Version 2)
Quarter: 2018Q4

REPORT INFORMATION
  Report Type: Report from Study
  Country: EG (occurrence: EG)
  Receive Date: 20181016
  Receipt Date: 20181120
  Transmission Date: 20190205
  Serious: Yes (Death, Hospitalization, Other)
  Sender: FDA-Public Use
  Company Number: EG-ROCHE-2198660

PATIENT
  Sex: Female
  Weight: 75 kg

DRUGS (1)
  1. GAZYVARO [Suspect]
     Active Substance: OBINUTUZUMAB
     Indication: CHRONIC LYMPHOCYTIC LEUKAEMIA
     Route: 042
     Dates: start: 20180922

REACTIONS (8)
  - Death [Fatal]
  - Anaemia [Unknown]
  - Coma [Unknown]
  - Lower respiratory tract infection [Unknown]
  - Blood bilirubin increased [Unknown]
  - Respiratory failure [Unknown]
  - General physical health deterioration [Unknown]
  - Hypokalaemia [Unknown]

NARRATIVE: CASE EVENT DATE: 20181006
